FAERS Safety Report 4895700-3 (Version None)
Quarter: 2006Q1

REPORT INFORMATION
  Report Type: 
  Country: None (occurrence: None)
  Receive Date: 20060125
  Receipt Date: 20060112
  Transmission Date: 20060701
  Serious: Yes (Death, Hospitalization)
  Sender: FDA-Public Use
  Company Number: SU-2005-004333

PATIENT
  Age: 68 Year
  Sex: Male
  Weight: 95.709 kg

DRUGS (4)
  1. WELCHOL [Suspect]
     Indication: HYPERCHOLESTEROLAEMIA
     Dosage: 1250 MG BID PO
     Route: 048
     Dates: start: 20050504, end: 20050101
  2. SPIRIVA [Concomitant]
  3. ALBUTEROL [Concomitant]
  4. COZAAR [Concomitant]

REACTIONS (4)
  - ACUTE MYOCARDIAL INFARCTION [None]
  - CHRONIC OBSTRUCTIVE PULMONARY DISEASE [None]
  - CONDITION AGGRAVATED [None]
  - POST PROCEDURAL COMPLICATION [None]
